FAERS Safety Report 4379377-1 (Version None)
Quarter: 2004Q2

REPORT INFORMATION
  Report Type: 
  Country: None (occurrence: None)
  Receive Date: 20040610
  Receipt Date: 20040526
  Transmission Date: 20050107
  Serious: Yes (Death)
  Sender: FDA-Public Use
  Company Number: KII-2002-0010931

PATIENT
  Age: 42 Year
  Sex: Female

DRUGS (11)
  1. OXYCONTIN [Suspect]
     Indication: CANCER PAIN
     Dosage: 560 MG, Q12H, ORAL
     Route: 048
  2. OXYCODONE HCL [Suspect]
     Indication: CANCER PAIN
     Dosage: 60 MG, ORAL
     Route: 048
  3. TRILISATE LIQUID 500MG/TSP (CHOLINE MAGNESIUM TRISALICYLATE) LIQUID [Suspect]
     Indication: PAIN
  4. COMPAZINE [Concomitant]
  5. REGLAN-BENADRYL-DEXAMETHASONE (RBD) [Concomitant]
  6. QUESTRAN [Concomitant]
  7. ROBITUSSIN-DM (GUAIFENESIN, DEXTROMETHORPHAN HYDROBROMIDE) [Concomitant]
  8. ALDACTONE [Concomitant]
  9. ATIVAN [Concomitant]
  10. ELAVIL [Concomitant]
  11. AMBIEN [Concomitant]

REACTIONS (4)
  - CERVIX CARCINOMA [None]
  - MALIGNANT NEOPLASM PROGRESSION [None]
  - POST PROCEDURAL DIARRHOEA [None]
  - STOOL ANALYSIS ABNORMAL [None]
